FAERS Safety Report 25418420 (Version 1)
Quarter: 2025Q2

REPORT INFORMATION
  Report Type: Spontaneous
  Country: US (occurrence: None)
  Receive Date: 20250606
  Receipt Date: 20250606
  Transmission Date: 20250716
  Serious: Yes (Hospitalization)
  Sender: FDA-CTU
  Company Number: None

PATIENT
  Age: 87 Year
  Sex: Male

DRUGS (4)
  1. TRAMADOL HYDROCHLORIDE [Suspect]
     Active Substance: TRAMADOL HYDROCHLORIDE
     Indication: Pain
     Dosage: FREQUENCY : 4 TIMES A DAY;?
     Route: 048
     Dates: end: 20250427
  2. TRAZODONE HCL [Suspect]
     Active Substance: TRAZODONE HYDROCHLORIDE
     Dosage: FREQUENCY : AT BEDTIME;?
     Route: 048
     Dates: end: 20250427
  3. GABAPENTIN [Suspect]
     Active Substance: GABAPENTIN
  4. MIRTAZAPINE [Suspect]
     Active Substance: MIRTAZAPINE

REACTIONS (1)
  - Confusional state [None]

NARRATIVE: CASE EVENT DATE: 20250423
